FAERS Safety Report 9146548 (Version 1)
Quarter: 2013Q1

REPORT INFORMATION
  Report Type: Spontaneous
  Country: TR (occurrence: TR)
  Receive Date: 20130307
  Receipt Date: 20130307
  Transmission Date: 20140127
  Serious: Yes (Hospitalization)
  Sender: FDA-Public Use
  Company Number: PHHY2013TR020879

PATIENT
  Age: 67 Year
  Sex: Male

DRUGS (1)
  1. PIPERACILLIN+TAZOBACTAM [Suspect]
     Indication: DIABETIC FOOT INFECTION
     Dosage: 4.5 MG, TID

REACTIONS (7)
  - White blood cell count decreased [Recovered/Resolved]
  - Neutropenia [Recovered/Resolved]
  - Thrombocytopenia [Recovered/Resolved]
  - Pyrexia [Recovered/Resolved]
  - Eosinophilia [Recovered/Resolved]
  - Rash [Unknown]
  - Fatigue [Unknown]
